FAERS Safety Report 18860941 (Version 1)
Quarter: 2021Q1

REPORT INFORMATION
  Report Type: Spontaneous
  Country: PL (occurrence: PL)
  Receive Date: 20210208
  Receipt Date: 20210208
  Transmission Date: 20210420
  Serious: Yes (Other)
  Sender: FDA-Public Use
  Company Number: PL-LUPIN PHARMACEUTICALS INC.-2021-01211

PATIENT
  Age: 45 Year
  Sex: Female

DRUGS (3)
  1. MIRTAZAPINE. [Suspect]
     Active Substance: MIRTAZAPINE
     Indication: BIPOLAR I DISORDER
     Dosage: 30 MILLIGRAM, QD (IN THE EVENING; TABLET)
     Route: 048
     Dates: start: 2017, end: 2017
  2. BUPROPION. [Suspect]
     Active Substance: BUPROPION
     Indication: BIPOLAR I DISORDER
     Dosage: 150 MILLIGRAM, QD (IN THE MORNING)
     Route: 065
  3. QUETIAPINE FUMARATE. [Suspect]
     Active Substance: QUETIAPINE FUMARATE
     Indication: BIPOLAR I DISORDER
     Dosage: 300 MILLIGRAM, QD (IN THE EVENING)
     Route: 065

REACTIONS (3)
  - Therapeutic product effect decreased [Unknown]
  - Weight increased [Recovered/Resolved]
  - Drug ineffective [Unknown]

NARRATIVE: CASE EVENT DATE: 2017
